FAERS Safety Report 5628716-X (Version None)
Quarter: 2008Q1

REPORT INFORMATION
  Report Type: 
  Country: None (occurrence: None)
  Receive Date: 20080215
  Receipt Date: 20080207
  Transmission Date: 20080703
  Serious: Yes (Other)
  Sender: FDA-Public Use
  Company Number: JP-PFIZER INC-2008012241

PATIENT
  Age: 85 Year
  Sex: Male

DRUGS (1)
  1. CARDENALIN [Suspect]
     Indication: HYPERTENSION
     Route: 048

REACTIONS (1)
  - EYE HAEMORRHAGE [None]
